FAERS Safety Report 20762497 (Version 1)
Quarter: 2022Q2

REPORT INFORMATION
  Report Type: Spontaneous
  Country: GB (occurrence: GB)
  Receive Date: 20220428
  Receipt Date: 20220428
  Transmission Date: 20220721
  Serious: Yes (Hospitalization, Other)
  Sender: FDA-Public Use
  Company Number: GB-TAKEDA-2021TUS026741

PATIENT
  Sex: Male

DRUGS (23)
  1. DEXAMETHASONE [Suspect]
     Active Substance: DEXAMETHASONE
     Indication: Plasma cell myeloma
     Dosage: FREQUENCY TEXT: NOT PROVIDED
     Route: 065
     Dates: start: 20180801
  2. DEXAMETHASONE [Suspect]
     Active Substance: DEXAMETHASONE
     Dosage: FREQUENCY TEXT: NOT PROVIDED?CTD X4 CVD
     Route: 065
  3. DEXAMETHASONE [Suspect]
     Active Substance: DEXAMETHASONE
     Dosage: FREQUENCY TEXT: NOT PROVIDED?10 MILLIGRAM
     Route: 065
     Dates: start: 20150103
  4. DEXAMETHASONE [Suspect]
     Active Substance: DEXAMETHASONE
     Dosage: FREQUENCY TEXT: NOT PROVIDED
     Route: 065
     Dates: start: 20171129
  5. DEXAMETHASONE [Suspect]
     Active Substance: DEXAMETHASONE
     Dosage: FREQUENCY TEXT: NOT PROVIDED?20 MILLIGRAM
     Route: 065
     Dates: start: 20171204
  6. DEXAMETHASONE [Suspect]
     Active Substance: DEXAMETHASONE
     Dosage: FREQUENCY TEXT: NOT PROVIDED?20 MILLIGRAM
     Route: 065
     Dates: start: 20180109
  7. DEXAMETHASONE [Suspect]
     Active Substance: DEXAMETHASONE
     Dosage: FREQUENCY TEXT: NOT PROVIDED?20 MILLIGRAM
     Route: 065
     Dates: start: 20180206
  8. DEXAMETHASONE [Suspect]
     Active Substance: DEXAMETHASONE
     Route: 065
     Dates: start: 20201111
  9. LENALIDOMIDE [Suspect]
     Active Substance: LENALIDOMIDE
     Indication: Plasma cell myeloma
     Dosage: FREQUENCY TEXT: NOT PROVIDED
     Route: 048
     Dates: start: 20180801, end: 201905
  10. LENALIDOMIDE [Suspect]
     Active Substance: LENALIDOMIDE
     Dosage: FREQUENCY TEXT: NOT PROVIDED
     Route: 048
     Dates: start: 201912
  11. LENALIDOMIDE [Suspect]
     Active Substance: LENALIDOMIDE
     Route: 048
     Dates: start: 20201111
  12. IXAZOMIB [Suspect]
     Active Substance: IXAZOMIB
     Indication: Plasma cell myeloma
     Route: 048
     Dates: start: 20180802
  13. IXAZOMIB [Suspect]
     Active Substance: IXAZOMIB
     Route: 065
     Dates: start: 20201111
  14. IXAZOMIB [Suspect]
     Active Substance: IXAZOMIB
     Route: 065
     Dates: start: 20201112
  15. IXAZOMIB [Suspect]
     Active Substance: IXAZOMIB
     Route: 048
     Dates: start: 20210430, end: 20220321
  16. ERYTHROMYCIN [Concomitant]
     Active Substance: ERYTHROMYCIN
     Indication: Product used for unknown indication
     Dosage: FREQUENCY TEXT: NOT PROVIDED
     Route: 065
  17. ACYCLOVIR [Concomitant]
     Active Substance: ACYCLOVIR
     Indication: Product used for unknown indication
     Dosage: FREQUENCY TEXT: NOT PROVIDED
     Route: 065
  18. PENICILLIN [Concomitant]
     Active Substance: PENICILLIN
     Indication: Product used for unknown indication
     Dosage: FREQUENCY TEXT: NOT PROVIDED
     Route: 065
  19. SULFAMETHOXAZOLE [Concomitant]
     Active Substance: SULFAMETHOXAZOLE
     Indication: Infection prophylaxis
     Dosage: FREQUENCY TEXT: NOT PROVIDED
     Route: 065
  20. TRIMETHOPRIM [Concomitant]
     Active Substance: TRIMETHOPRIM
     Indication: Infection prophylaxis
     Dosage: FREQUENCY TEXT: NOT PROVIDED
     Route: 065
  21. POMALIDOMIDE [Concomitant]
     Active Substance: POMALIDOMIDE
     Indication: Plasma cell myeloma
     Dosage: FREQUENCY TEXT: NOT PROVIDED?2 MILLIGRAM
     Route: 048
  22. POMALIDOMIDE [Concomitant]
     Active Substance: POMALIDOMIDE
     Dosage: FREQUENCY TEXT: NOT PROVIDED
     Route: 048
     Dates: start: 20171129
  23. POMALIDOMIDE [Concomitant]
     Active Substance: POMALIDOMIDE
     Dosage: FREQUENCY TEXT: NOT PROVIDED?4 MILLIGRAM
     Route: 048
     Dates: start: 20171204

REACTIONS (36)
  - Vitamin B12 deficiency [Unknown]
  - Vision blurred [Unknown]
  - Cellulitis enterococcal [Recovered/Resolved]
  - Cough [Unknown]
  - Lower respiratory tract infection [Unknown]
  - Fatigue [Unknown]
  - Clostridium difficile infection [Recovered/Resolved]
  - SARS-CoV-2 antibody test positive [Unknown]
  - Clonal haematopoiesis [Unknown]
  - Dry skin [Unknown]
  - Wound [Unknown]
  - Limb injury [Unknown]
  - Myelodysplastic syndrome [Unknown]
  - Chest discomfort [Unknown]
  - Skin atrophy [Unknown]
  - Blood pressure increased [Not Recovered/Not Resolved]
  - Blood magnesium decreased [Unknown]
  - Blood calcium decreased [Unknown]
  - Haemoglobin decreased [Unknown]
  - Cytopenia [Unknown]
  - Plasma cell myeloma [Recovered/Resolved]
  - Myelosuppression [Unknown]
  - Pancytopenia [Unknown]
  - Proteus infection [Recovered/Resolved]
  - Pyrexia [Recovered/Resolved]
  - Septic shock [Recovered/Resolved with Sequelae]
  - Peripheral swelling [Unknown]
  - Thrombocytopenia [Unknown]
  - Wound infection [Recovered/Resolved]
  - SARS-CoV-2 test positive [Unknown]
  - Chest discomfort [Unknown]
  - Haemoglobin decreased [Unknown]
  - Fatigue [Unknown]
  - Peripheral swelling [Unknown]
  - Confusional state [Unknown]
  - Balance disorder [Unknown]

NARRATIVE: CASE EVENT DATE: 20180524
